FAERS Safety Report 10709432 (Version 1)
Quarter: 2015Q1

REPORT INFORMATION
  Report Type: Spontaneous
  Country: US (occurrence: None)
  Receive Date: 20150113
  Receipt Date: 20150113
  Transmission Date: 20150721
  Serious: Yes (Disabling)
  Sender: FDA-Public Use
  Company Number: None

PATIENT
  Age: 68 Year
  Sex: Female
  Weight: 58.97 kg

DRUGS (5)
  1. CENTRUM SILVER [Concomitant]
     Active Substance: VITAMINS
  2. PROLIA [Suspect]
     Active Substance: DENOSUMAB
     Indication: OSTEOPOROSIS PROPHYLAXIS
     Dosage: 1 SHOT EVERY 6 MONTHS ?INJECTION?OCT 1/2014 NEVER AGAIN
     Dates: start: 20141001
  3. CITRICAL [Concomitant]
     Active Substance: CALCIUM CITRATE
  4. VITAMIN D [Concomitant]
     Active Substance: CHOLECALCIFEROL
  5. FISH OIL [Concomitant]
     Active Substance: FISH OIL

REACTIONS (4)
  - Lichen planus [None]
  - Myalgia [None]
  - Arthralgia [None]
  - Rash [None]

NARRATIVE: CASE EVENT DATE: 20141001
